FAERS Safety Report 18209182 (Version 16)
Quarter: 2025Q4

REPORT INFORMATION
  Report Type: Report from Study
  Country: US (occurrence: US)
  Receive Date: 20200828
  Receipt Date: 20251106
  Transmission Date: 20260117
  Serious: Yes (Hospitalization, Other)
  Sender: TAKEDA
  Company Number: US-SHIRE-US202027460

PATIENT
  Sex: Female

DRUGS (2)
  1. HUMAN IMMUNOGLOBULIN G [Suspect]
     Active Substance: HUMAN IMMUNOGLOBULIN G
     Indication: Immunodeficiency common variable
     Dosage: 35 GRAM, MONTHLY
  2. HUMAN IMMUNOGLOBULIN G [Suspect]
     Active Substance: HUMAN IMMUNOGLOBULIN G
     Indication: Primary immunodeficiency syndrome
     Dosage: UNK UNK, MONTHLY

REACTIONS (31)
  - Rheumatoid arthritis [Unknown]
  - Osteoporosis [Unknown]
  - Fall [Unknown]
  - Humerus fracture [Unknown]
  - Meniscus injury [Unknown]
  - Femur fracture [Unknown]
  - Pain [Recovered/Resolved]
  - Headache [Recovered/Resolved]
  - Procedural pain [Unknown]
  - Synovitis [Not Recovered/Not Resolved]
  - Staphylococcal infection [Unknown]
  - Postoperative wound infection [Not Recovered/Not Resolved]
  - Nausea [Unknown]
  - Cyst [Unknown]
  - Osteomyelitis [Unknown]
  - Diarrhoea [Unknown]
  - Granuloma [Unknown]
  - Sciatica [Unknown]
  - Osteopenia [Unknown]
  - Impaired healing [Not Recovered/Not Resolved]
  - Serum ferritin decreased [Unknown]
  - Scar [Not Recovered/Not Resolved]
  - Fluid retention [Unknown]
  - Weight increased [Unknown]
  - Weight decreased [Unknown]
  - Allergy to surgical sutures [Unknown]
  - Inappropriate schedule of product administration [Unknown]
  - COVID-19 [Unknown]
  - Insurance issue [Unknown]
  - Muscle spasms [Not Recovered/Not Resolved]
  - Back pain [Not Recovered/Not Resolved]

NARRATIVE: CASE EVENT DATE: 20240601
